FAERS Safety Report 14444810 (Version 1)
Quarter: 2018Q1

REPORT INFORMATION
  Report Type: Report from Study
  Country: US (occurrence: US)
  Receive Date: 20180126
  Receipt Date: 20180126
  Transmission Date: 20180509
  Serious: Yes (Other)
  Sender: FDA-Public Use
  Company Number: US-ROCHE-2061477

PATIENT
  Sex: Male
  Weight: 39.04 kg

DRUGS (1)
  1. NUTROPIN AQ [Suspect]
     Active Substance: SOMATROPIN
     Indication: GROWTH HORMONE DEFICIENCY
     Dosage: ONGOING, NUSPIN 20MG
     Route: 058
     Dates: start: 201508

REACTIONS (1)
  - Amnesia [Unknown]
